FAERS Safety Report 12573143 (Version 3)
Quarter: 2016Q3

REPORT INFORMATION
  Report Type: Report from Study
  Country: TW (occurrence: TW)
  Receive Date: 20160720
  Receipt Date: 20160812
  Transmission Date: 20161109
  Serious: Yes (Hospitalization, Other)
  Sender: FDA-Public Use
  Company Number: TW-BRISTOL-MYERS SQUIBB COMPANY-BMS-2016-057204

PATIENT
  Age: 57 Year
  Sex: Female

DRUGS (1)
  1. ABATACEPT [Suspect]
     Active Substance: ABATACEPT
     Indication: RHEUMATOID ARTHRITIS
     Dosage: 750 MG, QMO
     Route: 041
     Dates: start: 20131004

REACTIONS (10)
  - Diabetes mellitus inadequate control [Unknown]
  - Decreased appetite [Unknown]
  - Dizziness [Recovering/Resolving]
  - Hypotension [Recovering/Resolving]
  - Asthenia [Unknown]
  - Urinary tract infection [Unknown]
  - Vomiting [Recovering/Resolving]
  - Sepsis [Unknown]
  - Acute kidney injury [Unknown]
  - Hyponatraemia [Unknown]

NARRATIVE: CASE EVENT DATE: 20150410
